FAERS Safety Report 12605635 (Version 1)
Quarter: 2016Q3

REPORT INFORMATION
  Report Type: Spontaneous
  Country: US (occurrence: US)
  Receive Date: 20160729
  Receipt Date: 20160729
  Transmission Date: 20161109
  Serious: Yes (Death, Other)
  Sender: FDA-Public Use
  Company Number: US-BRISTOL-MYERS SQUIBB COMPANY-BMS-2016-060778

PATIENT
  Sex: Male
  Weight: 111.5 kg

DRUGS (2)
  1. FERRLECIT                          /00023541/ [Concomitant]
     Indication: PRODUCT USED FOR UNKNOWN INDICATION
     Dosage: UNK
     Route: 065
  2. OPDIVO [Suspect]
     Active Substance: NIVOLUMAB
     Indication: CHONDROSARCOMA
     Dosage: ONE
     Route: 042
     Dates: start: 20160630, end: 20160630

REACTIONS (3)
  - Death [Fatal]
  - Asthenia [Unknown]
  - Product use issue [Unknown]
